FAERS Safety Report 6394635-7 (Version None)
Quarter: 2009Q4

REPORT INFORMATION
  Report Type: 
  Country: None (occurrence: None)
  Receive Date: 20091009
  Receipt Date: 20090930
  Transmission Date: 20100525
  Serious: No
  Sender: FDA-Public Use
  Company Number: KR-JNJFOC-20090908822

PATIENT
  Sex: Male

DRUGS (2)
  1. DURAGESIC-100 [Suspect]
     Indication: POST HERPETIC NEURALGIA
     Route: 062
  2. OXYCONTIN [Concomitant]
     Indication: POST HERPETIC NEURALGIA

REACTIONS (2)
  - DRUG PRESCRIBING ERROR [None]
  - UNEVALUABLE EVENT [None]
